FAERS Safety Report 13085671 (Version 1)
Quarter: 2017Q1

REPORT INFORMATION
  Report Type: Report from Study
  Country: None (occurrence: US)
  Receive Date: 20170104
  Receipt Date: 20170104
  Transmission Date: 20170428
  Serious: Yes (Other)
  Sender: FDA-Public Use
  Company Number: US-ABBVIE-16K-163-1826258-00

PATIENT
  Sex: Female

DRUGS (2)
  1. HUMIRA [Suspect]
     Active Substance: ADALIMUMAB
     Indication: PSORIATIC ARTHROPATHY
     Route: 058
  2. HUMIRA [Suspect]
     Active Substance: ADALIMUMAB
     Route: 058
     Dates: start: 20160928

REACTIONS (12)
  - Activities of daily living impaired [Unknown]
  - Pain [Unknown]
  - Visual impairment [Unknown]
  - Arthralgia [Unknown]
  - Hot flush [Unknown]
  - Joint swelling [Unknown]
  - Joint stiffness [Unknown]
  - Headache [Unknown]
  - Gait disturbance [Unknown]
  - Mycobacterium tuberculosis complex test positive [Unknown]
  - Anxiety [Unknown]
  - Depression [Unknown]
